FAERS Safety Report 9701633 (Version 2)
Quarter: 2013Q4

REPORT INFORMATION
  Report Type: Spontaneous
  Country: US (occurrence: US)
  Receive Date: 20131119
  Receipt Date: 20131119
  Transmission Date: 20140711
  Serious: Yes (Other)
  Sender: FDA-Public Use
  Company Number: US-ORACLE-2011S1000062

PATIENT
  Age: 54 Year
  Sex: Male

DRUGS (10)
  1. KRYSTEXXA INJECTION [Suspect]
     Indication: GOUTY TOPHUS
     Dates: start: 20110810, end: 20110810
  2. KRYSTEXXA INJECTION [Suspect]
     Indication: GOUTY TOPHUS
     Dates: start: 20110727, end: 20110727
  3. SOLU MEDROL [Concomitant]
     Indication: PREMEDICATION
     Route: 042
     Dates: start: 20110810, end: 20110810
  4. SOLU MEDROL [Concomitant]
     Indication: PREMEDICATION
     Route: 042
     Dates: start: 20110727, end: 20110727
  5. TYLENOL /00020001/ [Concomitant]
     Indication: PREMEDICATION
     Route: 048
     Dates: start: 20110810, end: 20110810
  6. TYLENOL /00020001/ [Concomitant]
     Indication: PREMEDICATION
     Route: 048
     Dates: start: 20110727, end: 20110727
  7. BENADRYL /01563701/ [Concomitant]
     Indication: PREMEDICATION
     Route: 048
     Dates: start: 20110810, end: 20110810
  8. BENADRYL /01563701/ [Concomitant]
     Indication: PREMEDICATION
     Route: 048
     Dates: start: 20110727, end: 20110727
  9. PREDNISONE [Concomitant]
     Indication: GOUT
  10. LORTAB /00607101/ [Concomitant]
     Indication: GOUT

REACTIONS (2)
  - Anaphylactic reaction [Recovered/Resolved]
  - Blood pressure increased [Unknown]
